FAERS Safety Report 7225570 (Version 5)
Quarter: 2022Q2

REPORT INFORMATION
  Report Type: Spontaneous
  Country: GB (occurrence: GB)
  Receive Date: 20091221
  Receipt Date: 20220623
  Transmission Date: 20220721
  Serious: Yes (Congenital Anomaly, Other)
  Sender: FDA-Public Use
  Company Number: None

PATIENT

DRUGS (16)
  1. ONDANSETRON [Suspect]
     Active Substance: ONDANSETRON
     Indication: Vomiting
     Dosage: 4 MILLIGRAM, BID (PARENT ROUTE IS IV/IM/ORAL)
     Route: 064
     Dates: start: 20080112, end: 20080114
  2. ONDANSETRON [Suspect]
     Active Substance: ONDANSETRON
     Dosage: 4 MILLIGRAM, QD
     Route: 064
     Dates: start: 20080112, end: 20080114
  3. ONDANSETRON [Suspect]
     Active Substance: ONDANSETRON
     Dosage: 8 MILLIGRAM, ONCE A DAY
     Route: 064
     Dates: start: 20080112, end: 20080114
  4. ONDANSETRON [Suspect]
     Active Substance: ONDANSETRON
     Dosage: 4 MILLIGRAM, TID (PARENT ROUTE IS IV/IM/ORAL)
     Route: 064
     Dates: start: 20080114
  5. ONDANSETRON [Suspect]
     Active Substance: ONDANSETRON
     Dosage: 12 MILLIGRAM, ONCE A DAY
     Route: 064
     Dates: start: 20080114
  6. ONDANSETRON [Suspect]
     Active Substance: ONDANSETRON
     Dosage: 4 MILLIGRAM, QD
     Route: 064
     Dates: start: 20080114
  7. CYCLIZINE [Concomitant]
     Active Substance: CYCLIZINE
     Indication: Product used for unknown indication
     Dosage: 50 MILLIGRAM, QD (PARENT ROUTE IV/IM/ORAL ROUTE)
     Route: 064
     Dates: start: 20080109, end: 20080114
  8. CYCLIZINE [Concomitant]
     Active Substance: CYCLIZINE
     Dosage: 150 MILLIGRAM, QD50 MILLIGRAM, TID (PARENT ROUTE IV/IM/ORAL ROUTE)
     Route: 064
     Dates: start: 20080109, end: 20080114
  9. FOLIC ACID [Concomitant]
     Active Substance: FOLIC ACID
     Indication: Product used for unknown indication
     Dosage: MATERNAL DOSE: 5 MG, QD (MORNING)
     Route: 064
     Dates: start: 200801
  10. METOCLOPRAMIDE [Concomitant]
     Active Substance: METOCLOPRAMIDE
     Indication: Product used for unknown indication
     Dosage: 10 MILLIGRAM, TID (PARENT ROUTE IV/IM/ORAL)
     Route: 064
     Dates: start: 20080109, end: 20080115
  11. METOCLOPRAMIDE [Concomitant]
     Active Substance: METOCLOPRAMIDE
     Dosage: 10 MILLIGRAM, TID
     Route: 064
     Dates: start: 20080116
  12. METOCLOPRAMIDE [Concomitant]
     Active Substance: METOCLOPRAMIDE
     Dosage: 30 MILLIGRAM, ONCE A DAY (10 MILLIGRAM, TID (PARENT ROUTE IV/IM/ORAL) )
     Route: 064
     Dates: start: 20080109, end: 20080115
  13. METOCLOPRAMIDE [Concomitant]
     Active Substance: METOCLOPRAMIDE
     Dosage: 30 MILLIGRAM, ONCE A DAY (10 MILLIGRAM, TID (PARENT ROUTE IV/IM/ORAL) )
     Route: 064
     Dates: start: 20080116
  14. PROMETHAZINE [Concomitant]
     Active Substance: PROMETHAZINE HYDROCHLORIDE
     Indication: Product used for unknown indication
     Dosage: 25 MILLIGRAM, TID
     Route: 064
     Dates: start: 20080109, end: 20080110
  15. PROMETHAZINE [Concomitant]
     Active Substance: PROMETHAZINE HYDROCHLORIDE
     Dosage: 75 MILLIGRAM, ONCE A DAY (MATERNAL DOSE: 25 MG, TID )
     Route: 064
     Dates: start: 20080109, end: 20080110
  16. THIAMINE [Concomitant]
     Active Substance: THIAMINE
     Indication: Product used for unknown indication
     Dosage: MATERNAL DOSE: 25 MG, QD
     Route: 064
     Dates: start: 20080114

REACTIONS (8)
  - Foetal growth restriction [Unknown]
  - Foetal malformation [Unknown]
  - Gastroschisis [Unknown]
  - Heart disease congenital [Unknown]
  - Spinal deformity [Unknown]
  - Maternal drugs affecting foetus [Unknown]
  - Foetal exposure during pregnancy [Recovered/Resolved]
  - Exposure during pregnancy [Recovered/Resolved]

NARRATIVE: CASE EVENT DATE: 20080101
